FAERS Safety Report 22322740 (Version 1)
Quarter: 2023Q2

REPORT INFORMATION
  Report Type: Report from Study
  Country: EG (occurrence: EG)
  Receive Date: 20230516
  Receipt Date: 20230516
  Transmission Date: 20230722
  Serious: Yes (Other)
  Sender: FDA-Public Use
  Company Number: EG-002147023-NVSC2023EG094032

PATIENT
  Sex: Female

DRUGS (14)
  1. GILENYA [Suspect]
     Active Substance: FINGOLIMOD HYDROCHLORIDE
     Indication: Multiple sclerosis
     Dosage: QD (STARTED IN SEP OR OCT 2021 AND STOPPED ONE YEAR AND HALF AGO)
     Route: 048
     Dates: start: 2021
  2. TRAVATAN [Concomitant]
     Active Substance: TRAVOPROST
     Indication: Glaucoma
     Dosage: BID
     Route: 065
     Dates: start: 2013
  3. TRAVATAN [Concomitant]
     Active Substance: TRAVOPROST
     Indication: Ocular discomfort
  4. COSOPT [Concomitant]
     Active Substance: DORZOLAMIDE HYDROCHLORIDE\TIMOLOL MALEATE
     Indication: Glaucoma
     Dosage: QD
     Route: 065
     Dates: start: 2015
  5. COSOPT [Concomitant]
     Active Substance: DORZOLAMIDE HYDROCHLORIDE\TIMOLOL MALEATE
     Indication: Ocular discomfort
  6. SYSTANE (HYPROMELLOSE 2910 (4000 MPA.S)) [Concomitant]
     Active Substance: HYPROMELLOSE 2910 (4000 MPA.S)
     Indication: Eye lubrication therapy
     Dosage: (5 TO 6 TIMES DAILY)
     Route: 065
     Dates: start: 2015
  7. ALPHAGAN P [Concomitant]
     Active Substance: BRIMONIDINE TARTRATE
     Indication: Ocular discomfort
     Dosage: BID
     Route: 065
     Dates: start: 2015, end: 202201
  8. CONTROLOC [Concomitant]
     Active Substance: PANTOPRAZOLE SODIUM
     Indication: Gastritis prophylaxis
     Dosage: QD
     Route: 048
     Dates: start: 2018
  9. CONTROLOC [Concomitant]
     Active Substance: PANTOPRAZOLE SODIUM
     Dosage: BID
     Route: 048
     Dates: start: 2022
  10. OMEGA 3 PLUS [Concomitant]
     Indication: Supplementation therapy
     Dosage: QD
     Route: 048
     Dates: start: 2015
  11. VIDROP [Concomitant]
     Indication: Supplementation therapy
     Dosage: ONE DROPPER DAILY, QD
     Route: 048
     Dates: start: 2010
  12. NEXIUM [Concomitant]
     Active Substance: ESOMEPRAZOLE MAGNESIUM
     Indication: Gastritis prophylaxis
     Dosage: QD (40)
     Route: 048
     Dates: start: 2018
  13. NEXIUM [Concomitant]
     Active Substance: ESOMEPRAZOLE MAGNESIUM
     Dosage: BID, SINCE LAST YEAR
     Route: 048
     Dates: start: 2022
  14. REBIF [Concomitant]
     Active Substance: INTERFERON BETA-1A
     Indication: Relapsing-remitting multiple sclerosis
     Route: 065

REACTIONS (5)
  - Renal impairment [Unknown]
  - Multiple sclerosis [Recovering/Resolving]
  - Optic neuritis [Not Recovered/Not Resolved]
  - Hypoaesthesia [Recovering/Resolving]
  - Intraocular pressure increased [Unknown]
